FAERS Safety Report 4927451-0 (Version None)
Quarter: 2006Q1

REPORT INFORMATION
  Report Type: 
  Country: None (occurrence: None)
  Receive Date: 20060228
  Receipt Date: 20041111
  Transmission Date: 20060701
  Serious: Yes (Hospitalization)
  Sender: FDA-Public Use
  Company Number: JP-AVENTIS-200413469JP

PATIENT
  Age: 38 Year
  Sex: Male
  Weight: 75 kg

DRUGS (7)
  1. ARAVA [Suspect]
     Indication: RHEUMATOID ARTHRITIS
     Route: 048
     Dates: start: 20041028, end: 20041030
  2. ARAVA [Suspect]
     Route: 048
     Dates: start: 20041031, end: 20041110
  3. METOLATE [Concomitant]
     Indication: RHEUMATOID ARTHRITIS
     Dosage: DOSE: 7 MG/WEEK
     Route: 048
     Dates: end: 20041028
  4. LORCAM [Concomitant]
     Indication: RHEUMATOID ARTHRITIS
     Route: 048
     Dates: end: 20041110
  5. SELBEX [Concomitant]
     Route: 048
     Dates: end: 20041110
  6. GLIMICRON [Concomitant]
     Indication: DIABETES MELLITUS
     Route: 048
  7. GLUCOBAY [Concomitant]
     Route: 048

REACTIONS (7)
  - ALANINE AMINOTRANSFERASE INCREASED [None]
  - ASPARTATE AMINOTRANSFERASE INCREASED [None]
  - BLOOD ALKALINE PHOSPHATASE INCREASED [None]
  - BLOOD GLUCOSE FLUCTUATION [None]
  - BLOOD LACTATE DEHYDROGENASE INCREASED [None]
  - HYPERAEMIA [None]
  - STEVENS-JOHNSON SYNDROME [None]
